FAERS Safety Report 16055081 (Version 1)
Quarter: 2019Q1

REPORT INFORMATION
  Report Type: Spontaneous
  Country: HR (occurrence: HR)
  Receive Date: 20190310
  Receipt Date: 20190310
  Transmission Date: 20190418
  Serious: Yes (Other)
  Sender: FDA-Public Use
  Company Number: HR-009507513-1902HRV006372

PATIENT
  Age: 65 Year
  Sex: Male

DRUGS (1)
  1. KEYTRUDA [Suspect]
     Active Substance: PEMBROLIZUMAB
     Indication: LUNG ADENOCARCINOMA
     Dosage: 5 ADMINISTRATIONS
     Dates: start: 20180719, end: 20181023

REACTIONS (7)
  - Renal failure [Unknown]
  - Nervous system disorder [Unknown]
  - Hypothyroidism [Unknown]
  - Neutrophil count decreased [Unknown]
  - Myositis [Unknown]
  - Swelling face [Unknown]
  - Rhabdomyolysis [Unknown]

NARRATIVE: CASE EVENT DATE: 2018
